FAERS Safety Report 17354999 (Version 1)
Quarter: 2020Q1

REPORT INFORMATION
  Report Type: Report from Study
  Country: EG (occurrence: EG)
  Receive Date: 20200131
  Receipt Date: 20200131
  Transmission Date: 20200409
  Serious: Yes (Other)
  Sender: FDA-Public Use
  Company Number: NVSC2020EG021294

PATIENT
  Age: 77 Year
  Sex: Female

DRUGS (5)
  1. GLIVEC [Suspect]
     Active Substance: IMATINIB MESYLATE
     Indication: CHRONIC MYELOID LEUKAEMIA
     Dosage: 400 MG, QD (1 TAB / DAY)
     Route: 048
     Dates: start: 20191101
  2. GLIVEC [Suspect]
     Active Substance: IMATINIB MESYLATE
     Dosage: 100 MG, BID  (2 TAB /DAY)
     Route: 048
  3. EPEREX [Concomitant]
     Indication: PRODUCT USED FOR UNKNOWN INDICATION
     Dosage: UNK (ONE MONTHS AGO (TWICE/WEEK))
     Route: 065
  4. LANTUS [Concomitant]
     Active Substance: INSULIN GLARGINE
     Indication: PRODUCT USED FOR UNKNOWN INDICATION
     Dosage: UNK (20 YEARS AGO)
     Route: 065
  5. NOVORAPID [Concomitant]
     Active Substance: INSULIN ASPART
     Indication: PRODUCT USED FOR UNKNOWN INDICATION
     Dosage: UNK (20 YEARS AGO)
     Route: 065

REACTIONS (6)
  - Skin fissures [Recovering/Resolving]
  - Skin discolouration [Recovering/Resolving]
  - Hyperuricaemia [Recovering/Resolving]
  - Hypersensitivity [Recovering/Resolving]
  - Dry skin [Recovering/Resolving]
  - Anaemia [Recovered/Resolved]
